FAERS Safety Report 10904717 (Version 2)
Quarter: 2015Q2

REPORT INFORMATION
  Report Type: Spontaneous
  Country: FI (occurrence: FI)
  Receive Date: 20150311
  Receipt Date: 20150504
  Transmission Date: 20150821
  Serious: Yes (Disabling, Other)
  Sender: FDA-Public Use
  Company Number: FI-TEVA-546246ISR

PATIENT
  Sex: Male

DRUGS (1)
  1. AMOXIN 500 MG [Suspect]
     Active Substance: AMOXICILLIN
     Route: 048
     Dates: start: 2012

REACTIONS (3)
  - Myalgia [Not Recovered/Not Resolved]
  - Cardiomegaly [Recovered/Resolved]
  - Dyspnoea [Recovered/Resolved]

NARRATIVE: CASE EVENT DATE: 2012
